FAERS Safety Report 16269931 (Version 1)
Quarter: 2019Q2

REPORT INFORMATION
  Report Type: Spontaneous
  Country: US (occurrence: US)
  Receive Date: 20190502
  Receipt Date: 20190502
  Transmission Date: 20190711
  Serious: No
  Sender: FDA-Public Use
  Company Number: None

PATIENT
  Age: 33 Year
  Sex: Female
  Weight: 67.5 kg

DRUGS (3)
  1. MONISTAT 7 [Suspect]
     Active Substance: MICONAZOLE NITRATE
     Indication: VULVOVAGINAL MYCOTIC INFECTION
     Dosage: ?          QUANTITY:1 INJECTION(S);?
     Route: 067
     Dates: start: 20190424, end: 20190501
  2. MULTIVITAMIN [Concomitant]
     Active Substance: VITAMINS
  3. TUNA FISH OIL [Concomitant]

REACTIONS (3)
  - Dehydration [None]
  - Headache [None]
  - Musculoskeletal pain [None]

NARRATIVE: CASE EVENT DATE: 20190501
